FAERS Safety Report 10247866 (Version 3)
Quarter: 2014Q3

REPORT INFORMATION
  Report Type: Spontaneous
  Country: US (occurrence: US)
  Receive Date: 20140619
  Receipt Date: 20140822
  Transmission Date: 20150326
  Serious: Yes (Other)
  Sender: FDA-Public Use
  Company Number: US-PFIZER INC-2014166446

PATIENT
  Age: 72 Year
  Sex: Female
  Weight: 90 kg

DRUGS (8)
  1. GABAPENTIN. [Suspect]
     Active Substance: GABAPENTIN
     Indication: NEUROPATHY PERIPHERAL
     Dosage: 600 MG (TWO CAPSULES OF 300MG), 3X/DAY
     Route: 048
     Dates: start: 201305, end: 201403
  2. LYRICA [Suspect]
     Active Substance: PREGABALIN
     Indication: NEUROPATHY PERIPHERAL
     Dosage: UNK, 1X/DAY
     Route: 048
     Dates: start: 20140217
  3. LYRICA [Suspect]
     Active Substance: PREGABALIN
     Indication: PAIN
     Dosage: 75 MG, 2X/DAY
     Route: 048
     Dates: start: 201403, end: 201404
  4. GABAPENTIN. [Suspect]
     Active Substance: GABAPENTIN
     Dosage: 600 MG (TWO CAPSULES OF 300MG), 3X/DAY
     Route: 048
     Dates: start: 201404
  5. LYRICA [Suspect]
     Active Substance: PREGABALIN
     Indication: NEURALGIA
     Dosage: 75 MG, UNK
     Route: 048
     Dates: start: 20140117
  6. TRAMADOL [Concomitant]
     Active Substance: TRAMADOL
     Indication: PAIN
     Dosage: UNK
     Dates: start: 20140329
  7. LOSARTAN [Concomitant]
     Active Substance: LOSARTAN
     Indication: HYPERTENSION
     Dosage: 50 MG, 1X/DAY
  8. MENTAN X [Concomitant]
     Dosage: UNK
     Dates: start: 20140215

REACTIONS (2)
  - Meniscus injury [Unknown]
  - Foot deformity [Recovered/Resolved]

NARRATIVE: CASE EVENT DATE: 201403
